FAERS Safety Report 4782764-0 (Version None)
Quarter: 2005Q3

REPORT INFORMATION
  Report Type: 
  Country: None (occurrence: None)
  Receive Date: 20050927
  Receipt Date: 20050916
  Transmission Date: 20060218
  Serious: Yes (Hospitalization)
  Sender: FDA-Public Use
  Company Number: 200510530BFR

PATIENT
  Age: 35 Year
  Sex: Male

DRUGS (18)
  1. CIPROFLOXACIN HCL [Suspect]
     Indication: SINUSITIS
     Dosage: ORAL
     Route: 048
     Dates: start: 20050210
  2. CIPROFLOXACIN HCL [Suspect]
     Indication: SINUSITIS
     Dosage: ORAL
     Route: 048
     Dates: start: 20050221
  3. CIPROFLOXACIN HCL [Suspect]
     Indication: SINUSITIS
     Dosage: ORAL
     Route: 048
     Dates: start: 20050312
  4. CIPROFLOXACIN HCL [Suspect]
     Indication: SINUSITIS
     Dosage: ORAL
     Route: 048
     Dates: start: 20050317
  5. CIPROFLOXACIN HCL [Suspect]
     Indication: SINUSITIS
     Dosage: ORAL
     Route: 048
     Dates: start: 20050326
  6. CYTARABINE [Suspect]
     Indication: LYMPHOMA
     Dosage: INTRAVENOUS
     Route: 042
     Dates: end: 20050330
  7. CISPLATIN [Suspect]
     Indication: LYMPHOMA
     Dosage: INTRAVENOUS
     Route: 042
     Dates: end: 20050330
  8. VINCRISTINE [Suspect]
     Indication: LYMPHOMA
     Dosage: INTRAVENOUS
     Route: 042
     Dates: start: 20050330
  9. FLAGYL [Concomitant]
  10. IDARUBICINE [Concomitant]
  11. DEXAMETHASONE [Concomitant]
  12. METHYLPREDNISOLONE [Concomitant]
  13. ORELOX [Concomitant]
  14. FLUCONAZOLE [Concomitant]
  15. TAZOCILLINE [Concomitant]
  16. TOBRAMYCINE [Concomitant]
  17. VANCOMYCIN [Concomitant]
  18. FORTUM [Concomitant]

REACTIONS (6)
  - APLASIA [None]
  - PYREXIA [None]
  - RETINOPATHY [None]
  - SCOTOMA [None]
  - URINE CYTOMEGALOVIRUS [None]
  - VISUAL EVOKED POTENTIALS ABNORMAL [None]
